FAERS Safety Report 7724190-8 (Version None)
Quarter: 2011Q3

REPORT INFORMATION
  Report Type: 
  Country: None (occurrence: None)
  Receive Date: 20110901
  Receipt Date: 20110822
  Transmission Date: 20111222
  Serious: Yes (Other)
  Sender: FDA-Public Use
  Company Number: TR-CELGENEUS-161-21880-11081969

PATIENT
  Sex: Female

DRUGS (2)
  1. REVLIMID [Suspect]
     Dosage: D 1-21 OUT OF 28
     Route: 048
     Dates: start: 20110725, end: 20110815
  2. REVLIMID [Suspect]
     Indication: MULTIPLE MYELOMA
     Dosage: D 1-21 OUT OF 28
     Route: 048
     Dates: start: 20110101

REACTIONS (4)
  - HEART VALVE STENOSIS [None]
  - HEPATIC STEATOSIS [None]
  - COUGH [None]
  - LUNG DISORDER [None]
